FAERS Safety Report 4759496-8 (Version None)
Quarter: 2005Q3

REPORT INFORMATION
  Report Type: 
  Country: None (occurrence: None)
  Receive Date: 20050831
  Receipt Date: 20050817
  Transmission Date: 20060218
  Serious: Yes (Hospitalization)
  Sender: FDA-Public Use
  Company Number: WAES 0508USA03025

PATIENT
  Age: 69 Year
  Sex: Male

DRUGS (2)
  1. PROSCAR [Suspect]
     Dosage: 5 MG/DAILY/PO
     Route: 048
     Dates: start: 20030123
  2. HYTRIN [Suspect]
     Dosage: 2 MG/DAILY/PO
     Route: 048

REACTIONS (3)
  - GALLBLADDER DISORDER [None]
  - POST PROCEDURAL COMPLICATION [None]
  - URINARY RETENTION [None]
